FAERS Safety Report 8554612 (Version 3)
Quarter: 2013Q4

REPORT INFORMATION
  Report Type: Report from Study
  Country: US (occurrence: US)
  Receive Date: 20120503
  Receipt Date: 20131031
  Transmission Date: 20140711
  Serious: Yes (Other)
  Sender: FDA-Public Use
  Company Number: US-009507513-2012SP021647

PATIENT
  Sex: Male

DRUGS (5)
  1. VICTRELIS [Suspect]
     Indication: HEPATITIS C
     Dosage: UNK UNK, UNKNOWN
     Dates: start: 20120221, end: 20120526
  2. PEGINTRON [Suspect]
     Indication: HEPATITIS C
     Dosage: UNK UNK, UNKNOWN
     Dates: start: 20120124, end: 20120526
  3. REBETOL [Suspect]
     Indication: HEPATITIS C
     Dosage: UNK UNK, UNKNOWN
     Dates: start: 20120124, end: 20120526
  4. PROZAC [Concomitant]
     Indication: PRODUCT USED FOR UNKNOWN INDICATION
     Dosage: UNK UNK, UNKNOWN
     Route: 065
  5. LEXAPRO [Concomitant]
     Indication: PRODUCT USED FOR UNKNOWN INDICATION
     Dosage: UNK UNK, UNKNOWN
     Route: 065

REACTIONS (18)
  - Suicidal ideation [Unknown]
  - Depression [Unknown]
  - Anger [Unknown]
  - Dyspepsia [Unknown]
  - Hyperhidrosis [Unknown]
  - Flank pain [Unknown]
  - Dysphagia [Unknown]
  - Anger [Unknown]
  - Mood swings [Unknown]
  - Agitation [Unknown]
  - Blood count abnormal [Unknown]
  - Agitation [Unknown]
  - Nausea [Unknown]
  - Influenza like illness [Unknown]
  - Chills [Unknown]
  - Abdominal pain [Unknown]
  - Fatigue [Unknown]
  - Irritability [Unknown]
